FAERS Safety Report 13021999 (Version 1)
Quarter: 2016Q4

REPORT INFORMATION
  Report Type: Spontaneous
  Country: PT (occurrence: PT)
  Receive Date: 20161213
  Receipt Date: 20161213
  Transmission Date: 20170207
  Serious: Yes (Disabling)
  Sender: FDA-Public Use
  Company Number: PT-BIOGEN-2016BI00327187

PATIENT
  Age: 41 Year
  Sex: Male
  Weight: 60 kg

DRUGS (2)
  1. FAMPYRA [Suspect]
     Active Substance: DALFAMPRIDINE
     Indication: MULTIPLE SCLEROSIS
     Route: 048
     Dates: start: 20151117
  2. FAMPYRA [Suspect]
     Active Substance: DALFAMPRIDINE
     Route: 048

REACTIONS (2)
  - Mood altered [Not Recovered/Not Resolved]
  - Indifference [Not Recovered/Not Resolved]

NARRATIVE: CASE EVENT DATE: 20151117
